FAERS Safety Report 7669365-1 (Version None)
Quarter: 2011Q3

REPORT INFORMATION
  Report Type: 
  Country: None (occurrence: None)
  Receive Date: 20110808
  Receipt Date: 20110801
  Transmission Date: 20111222
  Serious: Yes (Hospitalization)
  Sender: FDA-Public Use
  Company Number: US-ROCHE-775955

PATIENT
  Sex: Male

DRUGS (8)
  1. PIOGLITAZONE [Suspect]
     Indication: HIV INFECTION
     Dosage: DATE OF LAST DOSE:4MAR2011(EST),PERMANENT DISCONT, INDICATION:HCVGENOTYPE1
     Route: 048
     Dates: start: 20100108, end: 20110502
  2. LEVOTHYROXINE SODIUM [Concomitant]
     Indication: HYPOTHYROIDISM
     Dosage: APPROX DURATION OF USE:4.5YRS, DATE OF LAST DOSE:5APR11, FREQUENCY:QD
     Route: 048
  3. ATAZANAVIR [Concomitant]
     Dosage: APPROX DURATION OF USE:2.5YRS, DATE OF LAST DOSE:5APR11, FREQUENCY:QD
     Route: 048
  4. TRUVADA [Concomitant]
     Dosage: APPROX DURATION OF USE:4YRS, DATE OF LAST DOSE:5APR11, FREQUENCY:QD
     Route: 048
  5. PEGINTERFERON ALFA-2A [Suspect]
     Indication: HIV INFECTION
     Dosage: DATE OF LAST DOSE: 4MAR2011(EST), PERMANENTLY DISCONTINUED,FREQ:NON-CYCLIC, INDICATION:HCV GENOTYPE1
     Route: 058
     Dates: start: 20100716, end: 20110502
  6. RITONAVIR [Concomitant]
     Dosage: APPROX DURATION OF USE:10YRS, DATE OF LAST DOSE:5APR11, FREQUENCY:QD
     Route: 048
  7. RALTEGRAVIR [Concomitant]
     Dosage: APPROX DURATION OF USE:2YRS, DATE OF LAST DOSE:5APR11
     Route: 048
  8. RIBAVIRIN [Suspect]
     Indication: HIV INFECTION
     Dosage: DATE OF LAST DOSE:4MAR2011(EST),PERMANENT DISCONT, INDICATION:HCVGENOTYPE1, 400MG QAM AND 600MG QPM
     Route: 048
     Dates: start: 20100718, end: 20110502

REACTIONS (2)
  - PANCREATITIS [None]
  - RENAL FAILURE ACUTE [None]
